FAERS Safety Report 8104367-2 (Version None)
Quarter: 2012Q1

REPORT INFORMATION
  Report Type: 
  Country: None (occurrence: None)
  Receive Date: 20120201
  Receipt Date: 20120125
  Transmission Date: 20120608
  Serious: Yes (Other)
  Sender: FDA-Public Use
  Company Number: US-BAYER-2012-008888

PATIENT
  Age: 20 Year
  Sex: Male
  Weight: 86 kg

DRUGS (1)
  1. ASPIRIN [Suspect]
     Indication: HEADACHE
     Dosage: UNK
     Route: 048
     Dates: start: 20120125

REACTIONS (4)
  - NAUSEA [None]
  - DIZZINESS [None]
  - TUNNEL VISION [None]
  - VOMITING [None]
